FAERS Safety Report 9563531 (Version 1)
Quarter: 2013Q3

REPORT INFORMATION
  Report Type: Spontaneous
  Country: US (occurrence: None)
  Receive Date: 20130926
  Receipt Date: 20130926
  Transmission Date: 20140515
  Serious: Yes (Hospitalization)
  Sender: FDA-Public Use
  Company Number: None

PATIENT
  Age: 45 Year
  Sex: Female
  Weight: 119.5 kg

DRUGS (1)
  1. TEMOZOLOMIDE [Suspect]
     Dates: end: 20130622

REACTIONS (7)
  - Abdominal discomfort [None]
  - Limb discomfort [None]
  - Chest discomfort [None]
  - Fall [None]
  - Mobility decreased [None]
  - Pulmonary embolism [None]
  - Pulmonary infarction [None]
